FAERS Safety Report 10006220 (Version 1)
Quarter: 2014Q1

REPORT INFORMATION
  Report Type: Spontaneous
  Country: US (occurrence: US)
  Receive Date: 20140313
  Receipt Date: 20140313
  Transmission Date: 20141002
  Serious: Yes (Other)
  Sender: FDA-Public Use
  Company Number: US-PFIZER INC-2014073209

PATIENT
  Age: 65 Year
  Sex: Female
  Weight: 75.28 kg

DRUGS (1)
  1. VENLAFAXINE HCL [Suspect]
     Indication: DEPRESSION
     Dosage: 75 MG, SINGLE
     Dates: start: 20140226, end: 20140226

REACTIONS (1)
  - Feeling abnormal [Recovered/Resolved]
